FAERS Safety Report 11987445 (Version 1)
Quarter: 2016Q1

REPORT INFORMATION
  Report Type: Spontaneous
  Country: US (occurrence: None)
  Receive Date: 20160201
  Receipt Date: 20160201
  Transmission Date: 20160526
  Serious: Yes (Disabling)
  Sender: FDA-Public Use
  Company Number: None

PATIENT
  Age: 45 Year
  Sex: Male
  Weight: 117.48 kg

DRUGS (8)
  1. ULORIC [Concomitant]
     Active Substance: FEBUXOSTAT
  2. P. CITRATE [Concomitant]
  3. DILAUDID [Concomitant]
     Active Substance: HYDROMORPHONE HYDROCHLORIDE
  4. BUTRANS [Concomitant]
     Active Substance: BUPRENORPHINE
  5. JANUVIA [Suspect]
     Active Substance: SITAGLIPTIN PHOSPHATE
     Indication: TYPE 2 DIABETES MELLITUS
     Dosage: 1 PILL ONCE DAILY TAKEN BY MOUTH
     Route: 048
     Dates: start: 20151123, end: 20160126
  6. GABAPENTIN. [Concomitant]
     Active Substance: GABAPENTIN
  7. IBUPROFEN. [Concomitant]
     Active Substance: IBUPROFEN
  8. SUMATRIPTAN. [Concomitant]
     Active Substance: SUMATRIPTAN

REACTIONS (9)
  - Muscular weakness [None]
  - Abasia [None]
  - Neck pain [None]
  - Dysstasia [None]
  - Myalgia [None]
  - Arthralgia [None]
  - Peripheral swelling [None]
  - Joint swelling [None]
  - Pain in extremity [None]

NARRATIVE: CASE EVENT DATE: 20160104
